FAERS Safety Report 26039487 (Version 1)
Quarter: 2025Q4

REPORT INFORMATION
  Report Type: Spontaneous
  Country: US (occurrence: None)
  Receive Date: 20251113
  Receipt Date: 20251113
  Transmission Date: 20260117
  Serious: No
  Sender: CHIESI
  Company Number: US-CHIESI-2025CHF00535

PATIENT
  Age: 1 Year
  Sex: Male

DRUGS (2)
  1. BETHKIS [Suspect]
     Active Substance: TOBRAMYCIN
     Indication: Chronic respiratory disease
     Dosage: UNK
     Route: 065
  2. BETHKIS [Suspect]
     Active Substance: TOBRAMYCIN
     Indication: Off label use

REACTIONS (3)
  - Rash [Recovered/Resolved]
  - Off label use [Recovered/Resolved]
  - Off label use [Recovered/Resolved]

NARRATIVE: CASE EVENT DATE: 20250101
